FAERS Safety Report 4482108-8 (Version None)
Quarter: 2004Q4

REPORT INFORMATION
  Report Type: 
  Country: None (occurrence: None)
  Receive Date: 20041020
  Receipt Date: 20041004
  Transmission Date: 20050328
  Serious: Yes (Hospitalization)
  Sender: FDA-Public Use
  Company Number: ACO_0006_2004

PATIENT
  Age: 53 Year
  Sex: Female

DRUGS (3)
  1. TERNELIN [Suspect]
     Dosage: 3 TAB QDAY PO
     Route: 048
     Dates: start: 20040601, end: 20040810
  2. CEROCRAL [Suspect]
     Dosage: 3 TAB QDAY PO
     Route: 048
     Dates: start: 20040601, end: 20040810
  3. CYANOCOBALAMIN [Concomitant]

REACTIONS (2)
  - HEPATITIS ACUTE [None]
  - MALAISE [None]
